FAERS Safety Report 5518280-8 (Version None)
Quarter: 2007Q4

REPORT INFORMATION
  Report Type: 
  Country: None (occurrence: None)
  Receive Date: 20071115
  Receipt Date: 20071114
  Transmission Date: 20080405
  Serious: Yes (Other)
  Sender: FDA-Public Use
  Company Number: B0495287A

PATIENT
  Age: 74 Year
  Sex: Female

DRUGS (6)
  1. ARIXTRA [Suspect]
     Indication: THROMBOSIS PROPHYLAXIS
     Dosage: 2.5MG PER DAY
     Route: 058
     Dates: start: 20071026, end: 20071030
  2. BERIZYM [Concomitant]
     Route: 048
  3. ULCERLMIN [Concomitant]
     Route: 048
  4. LIPIDIL [Concomitant]
     Route: 048
  5. ALTAT [Concomitant]
     Route: 048
  6. ALESION [Concomitant]
     Route: 048

REACTIONS (1)
  - ATRIAL FIBRILLATION [None]
